FAERS Safety Report 20721313 (Version 1)
Quarter: 2022Q2

REPORT INFORMATION
  Report Type: Spontaneous
  Country: GB (occurrence: GB)
  Receive Date: 20220418
  Receipt Date: 20220418
  Transmission Date: 20220721
  Serious: Yes (Other)
  Sender: FDA-Public Use
  Company Number: GB-LUNDBECK-DKLU3046583

PATIENT
  Sex: Male

DRUGS (5)
  1. ARIPIPRAZOLE [Suspect]
     Active Substance: ARIPIPRAZOLE
     Indication: Delirium
     Dosage: 10 MILLIGRAM
  2. ARIPIPRAZOLE [Suspect]
     Active Substance: ARIPIPRAZOLE
     Indication: Depression
     Dosage: UNK
  3. VORTIOXETINE [Suspect]
     Active Substance: VORTIOXETINE
     Indication: Depression
     Dosage: 10 MILLIGRAM
  4. VORTIOXETINE [Suspect]
     Active Substance: VORTIOXETINE
     Indication: Delirium
     Dosage: 15 MILLIGRAM
  5. VORTIOXETINE [Suspect]
     Active Substance: VORTIOXETINE
     Dosage: 10 MILLIGRAM

REACTIONS (2)
  - Tachycardia [Recovered/Resolved]
  - Blood pressure abnormal [Recovered/Resolved]
